FAERS Safety Report 12503987 (Version 1)
Quarter: 2016Q2

REPORT INFORMATION
  Report Type: Report from Study
  Country: US (occurrence: US)
  Receive Date: 20160628
  Receipt Date: 20160628
  Transmission Date: 20160815
  Serious: Yes (Hospitalization)
  Sender: FDA-Public Use
  Company Number: US-BIOGEN-2012BI035581

PATIENT
  Age: 42 Year
  Sex: Female

DRUGS (7)
  1. AVONEX [Suspect]
     Active Substance: INTERFERON BETA-1A
     Route: 030
     Dates: start: 19970623, end: 20120917
  2. AVONEX [Suspect]
     Active Substance: INTERFERON BETA-1A
     Route: 030
     Dates: start: 20031204, end: 20120917
  3. AVONEX [Suspect]
     Active Substance: INTERFERON BETA-1A
     Indication: MULTIPLE SCLEROSIS
     Route: 030
     Dates: start: 19970623, end: 20010101
  4. AVONEX [Suspect]
     Active Substance: INTERFERON BETA-1A
     Route: 030
     Dates: start: 2014
  5. AVONEX [Suspect]
     Active Substance: INTERFERON BETA-1A
     Route: 030
     Dates: start: 2003, end: 20120917
  6. AVONEX [Suspect]
     Active Substance: INTERFERON BETA-1A
     Route: 030
     Dates: end: 20030912
  7. AVONEX [Suspect]
     Active Substance: INTERFERON BETA-1A
     Route: 030
     Dates: start: 19970623, end: 2003

REACTIONS (11)
  - Dyskinesia [Not Recovered/Not Resolved]
  - Memory impairment [Not Recovered/Not Resolved]
  - Pain [Unknown]
  - Myalgia [Unknown]
  - Speech disorder [Recovered/Resolved]
  - Feeling abnormal [Not Recovered/Not Resolved]
  - Trigeminal neuralgia [Recovered/Resolved]
  - Pneumonia viral [Recovered/Resolved]
  - Muscle twitching [Not Recovered/Not Resolved]
  - Pain in extremity [Unknown]
  - Gait disturbance [Unknown]

NARRATIVE: CASE EVENT DATE: 20111013
